FAERS Safety Report 10284857 (Version 1)
Quarter: 2014Q3

REPORT INFORMATION
  Report Type: Spontaneous
  Country: GT (occurrence: GT)
  Receive Date: 20140708
  Receipt Date: 20140708
  Transmission Date: 20150326
  Serious: Yes (Death)
  Sender: FDA-Public Use
  Company Number: GT-BIOMARINAP-GT-2014-103632

PATIENT
  Age: 8 Year
  Sex: Female
  Weight: 18.14 kg

DRUGS (2)
  1. ALDURAZYME [Suspect]
     Active Substance: LARONIDASE
     Indication: MUCOPOLYSACCHARIDOSIS I
     Dosage: 0.58 MG/KG, QW
     Route: 042
     Dates: start: 200706, end: 20140626
  2. AMBROXOL [Concomitant]
     Active Substance: AMBROXOL
     Indication: PREMEDICATION
     Dosage: UNK
     Dates: end: 20140626

REACTIONS (6)
  - Productive cough [Unknown]
  - Cough [Unknown]
  - Cyanosis [Unknown]
  - Vomiting [Unknown]
  - Aspiration [Fatal]
  - Dyspnoea [Unknown]

NARRATIVE: CASE EVENT DATE: 20140626
